FAERS Safety Report 9779546 (Version 1)
Quarter: 2013Q4

REPORT INFORMATION
  Report Type: Spontaneous
  Country: US (occurrence: US)
  Receive Date: 20131223
  Receipt Date: 20131223
  Transmission Date: 20140711
  Serious: Yes (Other)
  Sender: FDA-Public Use
  Company Number: US-ELI_LILLY_AND_COMPANY-US201312005643

PATIENT
  Sex: Male

DRUGS (6)
  1. EFFIENT [Suspect]
     Indication: PRODUCT USED FOR UNKNOWN INDICATION
     Dosage: UNK
     Route: 048
     Dates: start: 20131117, end: 20131203
  2. ASPIRIN [Concomitant]
  3. LIPITOR [Concomitant]
  4. LISINOPRIL [Concomitant]
  5. CARDILOL                           /00984501/ [Concomitant]
  6. PROTONIX [Concomitant]

REACTIONS (2)
  - Vascular pseudoaneurysm [Unknown]
  - Myocardial infarction [Unknown]
